FAERS Safety Report 5352595-1 (Version None)
Quarter: 2007Q2

REPORT INFORMATION
  Report Type: 
  Country: None (occurrence: None)
  Receive Date: 20070611
  Receipt Date: 20070531
  Transmission Date: 20071010
  Serious: Yes (Other)
  Sender: FDA-Public Use
  Company Number: US-KINGPHARMUSA00001-K200700666

PATIENT

DRUGS (3)
  1. ALTACE [Suspect]
     Indication: HYPERTENSION
     Dosage: 10 MG, QD
     Route: 048
     Dates: start: 20060816, end: 20070401
  2. ARTHROTEC [Concomitant]
     Indication: BACK PAIN
     Dosage: 250 MG, UNK
     Route: 048
     Dates: start: 20050601
  3. BUPRENORPHINE HCL [Concomitant]
     Dosage: 200 UG, UNK
     Route: 058
     Dates: start: 20050601

REACTIONS (1)
  - SKIN ULCER [None]
